FAERS Safety Report 9377999 (Version 1)
Quarter: 2013Q3

REPORT INFORMATION
  Report Type: Spontaneous
  Country: US (occurrence: US)
  Receive Date: 20130701
  Receipt Date: 20130701
  Transmission Date: 20140515
  Serious: No
  Sender: FDA-Public Use
  Company Number: US-PFIZER INC-2013195036

PATIENT
  Sex: Female

DRUGS (3)
  1. LYRICA [Suspect]
     Dosage: 100 MG, UNK
  2. LYRICA [Suspect]
     Dosage: 75 MG, 2X/DAY
  3. SAVELLA [Concomitant]

REACTIONS (8)
  - Urticaria [Unknown]
  - Migraine [Unknown]
  - Skin disorder [Unknown]
  - Rash generalised [Unknown]
  - Pruritus [Unknown]
  - Headache [Unknown]
  - Confusional state [Unknown]
  - Hypersensitivity [Unknown]
